FAERS Safety Report 14889449 (Version 1)
Quarter: 2018Q2

REPORT INFORMATION
  Report Type: Report from Study
  Country: None (occurrence: US)
  Receive Date: 20180514
  Receipt Date: 20180514
  Transmission Date: 20180711
  Serious: Yes (Hospitalization, Other)
  Sender: FDA-Public Use
  Company Number: US-ABBVIE-18K-163-2339280-00

PATIENT
  Age: 72 Year
  Sex: Female
  Weight: 54.48 kg

DRUGS (1)
  1. HUMIRA [Suspect]
     Active Substance: ADALIMUMAB
     Indication: UVEITIS
     Route: 058
     Dates: start: 2015

REACTIONS (11)
  - Sputum discoloured [Recovered/Resolved]
  - Decreased appetite [Unknown]
  - Depression [Recovered/Resolved]
  - Procedural pain [Recovered/Resolved]
  - Insomnia [Recovered/Resolved]
  - Nerve compression [Not Recovered/Not Resolved]
  - Self esteem decreased [Recovering/Resolving]
  - Lung infection [Recovered/Resolved]
  - Urinary tract infection [Recovered/Resolved]
  - Weight decreased [Recovered/Resolved]
  - Pneumonia [Recovered/Resolved]

NARRATIVE: CASE EVENT DATE: 2017
